FAERS Safety Report 23299386 (Version 4)
Quarter: 2024Q2

REPORT INFORMATION
  Report Type: Other
  Country: US (occurrence: None)
  Receive Date: 20231215
  Receipt Date: 20240405
  Transmission Date: 20240715
  Serious: Yes (Hospitalization, Other)
  Sender: FDA-Public Use
  Company Number: US-ROCHE-3473180

PATIENT
  Age: 66 Year
  Sex: Female
  Weight: 90.8 kg

DRUGS (23)
  1. OCREVUS [Suspect]
     Active Substance: OCRELIZUMAB
     Indication: Relapsing-remitting multiple sclerosis
     Route: 042
     Dates: start: 20180104
  2. OCREVUS [Suspect]
     Active Substance: OCRELIZUMAB
     Dosage: 300 MG/10 ML, DATE OF SERVICE 24/MAR/2022
     Route: 042
     Dates: start: 2020
  3. OCREVUS [Suspect]
     Active Substance: OCRELIZUMAB
     Route: 042
     Dates: start: 2016, end: 202303
  4. OCREVUS [Suspect]
     Active Substance: OCRELIZUMAB
     Route: 042
     Dates: end: 2022
  5. OXCARBAZEPINE [Concomitant]
     Active Substance: OXCARBAZEPINE
  6. MEDROXYPROGESTERONE [Concomitant]
     Active Substance: MEDROXYPROGESTERONE
  7. PANTOPRAZOLE [Concomitant]
     Active Substance: PANTOPRAZOLE
  8. ELIQUIS [Concomitant]
     Active Substance: APIXABAN
  9. BACLOFEN [Concomitant]
     Active Substance: BACLOFEN
  10. GABAPENTIN [Concomitant]
     Active Substance: GABAPENTIN
  11. MODAFINIL [Concomitant]
     Active Substance: MODAFINIL
  12. ACETAMINOPHEN [Concomitant]
     Active Substance: ACETAMINOPHEN
  13. CYMBALTA [Concomitant]
     Active Substance: DULOXETINE HYDROCHLORIDE
  14. DIPHENHYDRAMINE HYDROCHLORIDE [Concomitant]
     Active Substance: DIPHENHYDRAMINE HYDROCHLORIDE
  15. FLECAINIDE [Concomitant]
     Active Substance: FLECAINIDE
  16. METHYLPREDNISOLONE [Concomitant]
     Active Substance: METHYLPREDNISOLONE
  17. GABAPENTIN [Concomitant]
     Active Substance: GABAPENTIN
  18. OXYCARBAZEPINA [Concomitant]
  19. PROVIGIL [Concomitant]
     Active Substance: MODAFINIL
  20. TOPAMAX [Concomitant]
     Active Substance: TOPIRAMATE
  21. TYLENOL [Concomitant]
     Active Substance: ACETAMINOPHEN
  22. VITAMIN B12 [Concomitant]
     Active Substance: CYANOCOBALAMIN
  23. VITAMIN D3 [Concomitant]
     Active Substance: CHOLECALCIFEROL

REACTIONS (7)
  - Urinary tract infection [Not Recovered/Not Resolved]
  - Asthma [Not Recovered/Not Resolved]
  - Breast cancer [Not Recovered/Not Resolved]
  - Immunodeficiency [Unknown]
  - Tremor [Not Recovered/Not Resolved]
  - Foot fracture [Not Recovered/Not Resolved]
  - Cough [Not Recovered/Not Resolved]

NARRATIVE: CASE EVENT DATE: 20230701
